FAERS Safety Report 13991657 (Version 1)
Quarter: 2017Q3

REPORT INFORMATION
  Report Type: Spontaneous
  Country: US (occurrence: US)
  Receive Date: 20170920
  Receipt Date: 20170920
  Transmission Date: 20171128
  Serious: No
  Sender: FDA-Public Use
  Company Number: US-PFIZER INC-2017407819

PATIENT
  Age: 41 Year
  Sex: Female
  Weight: 81.65 kg

DRUGS (3)
  1. IBUPROFEN. [Concomitant]
     Active Substance: IBUPROFEN
     Indication: ARTHRITIS
     Dosage: 800MG UP TO THREE TIMES, BUT USUALLY ONLY TAKE ONCE A DAY
  2. METHYLDOPA. [Concomitant]
     Active Substance: METHYLDOPA
     Indication: BLOOD PRESSURE ABNORMAL
     Dosage: 250MG TWICE A DAY
     Dates: start: 201512
  3. XELJANZ [Suspect]
     Active Substance: TOFACITINIB CITRATE
     Indication: RHEUMATOID ARTHRITIS
     Dosage: 5MG WHITE PILL TWICE A DAY
     Dates: start: 201702

REACTIONS (1)
  - Drug ineffective [Unknown]

NARRATIVE: CASE EVENT DATE: 201705
